FAERS Safety Report 14104245 (Version 1)
Quarter: 2017Q4

REPORT INFORMATION
  Report Type: Other
  Country: None (occurrence: CO)
  Receive Date: 20171018
  Receipt Date: 20171018
  Transmission Date: 20180321
  Serious: Yes (Other)
  Sender: FDA-Public Use
  Company Number: CO-POPULATION COUNCIL, INC.-2030524

PATIENT
  Sex: Female
  Weight: 73 kg

DRUGS (1)
  1. JADELLE [Suspect]
     Active Substance: LEVONORGESTREL
     Indication: CONTRACEPTION
     Route: 059
     Dates: start: 20150701

REACTIONS (6)
  - Device difficult to use [None]
  - Pain in extremity [Not Recovered/Not Resolved]
  - Drug ineffective [None]
  - Pregnancy with implant contraceptive [Recovered/Resolved]
  - Migration of implanted drug [Not Recovered/Not Resolved]
  - Limb discomfort [Not Recovered/Not Resolved]

NARRATIVE: CASE EVENT DATE: 201509
